FAERS Safety Report 7084679-4 (Version None)
Quarter: 2010Q4

REPORT INFORMATION
  Report Type: 
  Country: None (occurrence: None)
  Receive Date: 20101104
  Receipt Date: 20101026
  Transmission Date: 20110411
  Serious: Yes (Hospitalization, Other)
  Sender: FDA-Public Use
  Company Number: AU-GILEAD-2010-0032977

PATIENT
  Age: 18 Year
  Sex: Male
  Weight: 50.35 kg

DRUGS (1)
  1. VIREAD [Suspect]
     Indication: HIV INFECTION

REACTIONS (6)
  - BLOOD PHOSPHORUS ABNORMAL [None]
  - BONE DENSITY DECREASED [None]
  - BONE PAIN [None]
  - FOOT FRACTURE [None]
  - OSTEOPOROSIS [None]
  - RENAL FAILURE CHRONIC [None]
